FAERS Safety Report 15309534 (Version 1)
Quarter: 2018Q3

REPORT INFORMATION
  Report Type: Spontaneous
  Country: US (occurrence: US)
  Receive Date: 20180811
  Receipt Date: 20180811
  Transmission Date: 20181010
  Serious: Yes (Hospitalization)
  Sender: FDA-Public Use
  Company Number: None

PATIENT
  Age: 72 Year
  Sex: Female
  Weight: 90.7 kg

DRUGS (1)
  1. BEVACIZUMAB (RHUMAB VEGF) [Suspect]
     Active Substance: BEVACIZUMAB
     Dates: end: 20180726

REACTIONS (5)
  - Hypernatraemia [None]
  - Gait disturbance [None]
  - Cognitive disorder [None]
  - Pollakiuria [None]
  - Condition aggravated [None]

NARRATIVE: CASE EVENT DATE: 20180810
